FAERS Safety Report 5117348-8 (Version None)
Quarter: 2006Q3

REPORT INFORMATION
  Report Type: 
  Country: None (occurrence: None)
  Receive Date: 20060926
  Receipt Date: 20060921
  Transmission Date: 20061208
  Serious: Yes (Hospitalization)
  Sender: FDA-Public Use
  Company Number: 145057USA

PATIENT
  Age: 48 Year
  Sex: Female
  Weight: 68.0396 kg

DRUGS (3)
  1. COPAXONE [Suspect]
     Indication: MULTIPLE SCLEROSIS
     Dosage: 20 MG SUBCUTANEOUS
     Route: 058
     Dates: start: 20021201
  2. BUPROPION HYDROCHLORIDE [Concomitant]
  3. CLONAZEPAM [Concomitant]

REACTIONS (9)
  - ABDOMINAL DISTENSION [None]
  - BACTERIAL INFECTION [None]
  - BURSA DISORDER [None]
  - FLUID RETENTION [None]
  - HYPERSENSITIVITY [None]
  - INJECTION SITE ATROPHY [None]
  - INJECTION SITE FIBROSIS [None]
  - POST PROCEDURAL COMPLICATION [None]
  - SCAR [None]
